FAERS Safety Report 9068333 (Version 1)
Quarter: 2013Q1

REPORT INFORMATION
  Report Type: Spontaneous
  Country: US (occurrence: None)
  Receive Date: 20130212
  Receipt Date: 20130212
  Transmission Date: 20140127
  Serious: Yes (Other)
  Sender: FDA-Public Use
  Company Number: None

PATIENT
  Age: 42 Year
  Sex: Female
  Weight: 49.9 kg

DRUGS (1)
  1. ALEVE [Suspect]
     Indication: PAIN
     Dosage: 200 MG  ONCE ONLY  PO
     Route: 048
     Dates: start: 20020525, end: 20020525

REACTIONS (2)
  - Suicidal ideation [None]
  - Depressed level of consciousness [None]
